FAERS Safety Report 17055044 (Version 1)
Quarter: 2019Q4

REPORT INFORMATION
  Report Type: Spontaneous
  Country: US (occurrence: US)
  Receive Date: 20191120
  Receipt Date: 20191120
  Transmission Date: 20200122
  Serious: No
  Sender: FDA-Public Use
  Company Number: US-SA-2019SA319964

PATIENT
  Sex: Male

DRUGS (1)
  1. ZANTAC 150 MAXIMUM STRENGTH COOL MINT [Suspect]
     Active Substance: RANITIDINE HYDROCHLORIDE
     Indication: OESOPHAGEAL DISORDER
     Dosage: UNK
     Route: 065
     Dates: start: 201902, end: 201904

REACTIONS (1)
  - Oesophageal disorder [Unknown]
